FAERS Safety Report 11570797 (Version 1)
Quarter: 2015Q3

REPORT INFORMATION
  Report Type: Spontaneous
  Country: US (occurrence: US)
  Receive Date: 20150929
  Receipt Date: 20150929
  Transmission Date: 20151125
  Serious: Yes (Hospitalization, Other)
  Sender: FDA-Public Use
  Company Number: US-GLAXOSMITHKLINE-US2015137451

PATIENT
  Sex: Male

DRUGS (4)
  1. TYLENOL [Concomitant]
     Active Substance: ACETAMINOPHEN
  2. ADVAIR DISKUS [Suspect]
     Active Substance: FLUTICASONE PROPIONATE\SALMETEROL XINAFOATE
     Indication: ASTHMA
     Dosage: 1 PUFF(S), BID
     Route: 055
     Dates: start: 2015
  3. ADVAIR DISKUS [Suspect]
     Active Substance: FLUTICASONE PROPIONATE\SALMETEROL XINAFOATE
     Indication: DYSPNOEA
  4. ADVAIR DISKUS [Suspect]
     Active Substance: FLUTICASONE PROPIONATE\SALMETEROL XINAFOATE
     Indication: DYSPNOEA

REACTIONS (9)
  - Arthralgia [Not Recovered/Not Resolved]
  - Dyspnoea [Unknown]
  - Drug dose omission [Unknown]
  - Pulmonary congestion [Unknown]
  - Bone pain [Not Recovered/Not Resolved]
  - Back pain [Recovered/Resolved]
  - Peripheral swelling [Not Recovered/Not Resolved]
  - Extra dose administered [Unknown]
  - Arthritis [Not Recovered/Not Resolved]
